FAERS Safety Report 24852738 (Version 1)
Quarter: 2025Q1

REPORT INFORMATION
  Report Type: Spontaneous
  Country: EG (occurrence: EG)
  Receive Date: 20250116
  Receipt Date: 20250116
  Transmission Date: 20250409
  Serious: Yes (Death, Hospitalization)
  Sender: ELI LILLY AND COMPANY
  Company Number: EG-ELI_LILLY_AND_COMPANY-EG202501009944

PATIENT
  Age: 36 Year
  Sex: Male

DRUGS (1)
  1. HUMULIN R [Suspect]
     Active Substance: INSULIN HUMAN
     Indication: Diabetes mellitus
     Dosage: 10 INTERNATIONAL UNIT, TID
     Route: 058
     Dates: start: 20250108, end: 20250108

REACTIONS (1)
  - Hyperglycaemia [Fatal]

NARRATIVE: CASE EVENT DATE: 20250108
